FAERS Safety Report 24335914 (Version 1)
Quarter: 2024Q3

REPORT INFORMATION
  Report Type: Report from Study
  Country: ID (occurrence: ID)
  Receive Date: 20240919
  Receipt Date: 20240919
  Transmission Date: 20241016
  Serious: No
  Sender: ROCHE
  Company Number: ID-ROCHE-3427245

PATIENT
  Age: 55 Year
  Sex: Female

DRUGS (16)
  1. OSELTAMIVIR [Suspect]
     Active Substance: OSELTAMIVIR
     Indication: COVID-19
     Route: 065
  2. ZINC [Concomitant]
     Active Substance: ZINC
  3. DOMPERIDONE [Concomitant]
     Active Substance: DOMPERIDONE
  4. LEVOFLOKSASIN [Concomitant]
  5. BETAHISTINE [Concomitant]
     Active Substance: BETAHISTINE
  6. OBH [Concomitant]
  7. AMLODIPINE BESYLATE [Concomitant]
     Active Substance: AMLODIPINE BESYLATE
  8. METFORMIN [Concomitant]
     Active Substance: METFORMIN HYDROCHLORIDE
  9. DIMENHIDRINATO [Concomitant]
  10. NOVORAPID [Concomitant]
     Active Substance: INSULIN ASPART
  11. ONDANSETRON [Concomitant]
     Active Substance: ONDANSETRON
  12. OMEPRAZOLE [Concomitant]
     Active Substance: OMEPRAZOLE
  13. HEPARIN [Concomitant]
     Active Substance: HEPARIN SODIUM
  14. CANDESARTAN [Concomitant]
     Active Substance: CANDESARTAN
  15. EPERISONE [Concomitant]
     Active Substance: EPERISONE
  16. PREGABALIN [Concomitant]
     Active Substance: PREGABALIN

REACTIONS (3)
  - Off label use [Unknown]
  - Diarrhoea [Unknown]
  - Dizziness [Unknown]
